FAERS Safety Report 7273419-1 (Version None)
Quarter: 2011Q1

REPORT INFORMATION
  Report Type: 
  Country: None (occurrence: None)
  Receive Date: 20110203
  Receipt Date: 20100915
  Transmission Date: 20110831
  Serious: No
  Sender: FDA-Public Use
  Company Number: US-ABBOTT-10P-163-0671737-00

PATIENT
  Sex: Female
  Weight: 46.308 kg

DRUGS (3)
  1. SYNTHROID [Suspect]
     Indication: THYROIDITIS
  2. SYNTHROID [Suspect]
     Indication: AUTOIMMUNE THYROIDITIS
     Dosage: FIRST THING IN THE MORNING
     Route: 048
  3. VALIUM [Concomitant]
     Indication: ANXIETY
     Dosage: TAKES 2-3 TIMES DAILY,BUT UP TO 4

REACTIONS (7)
  - RASH [None]
  - INSOMNIA [None]
  - DYSPNOEA [None]
  - HEART RATE INCREASED [None]
  - DIZZINESS [None]
  - PRURITUS [None]
  - TEMPERATURE INTOLERANCE [None]
